FAERS Safety Report 9951752 (Version 4)
Quarter: 2015Q1

REPORT INFORMATION
  Report Type: Report from Study
  Country: US (occurrence: US)
  Receive Date: 20140304
  Receipt Date: 20150119
  Transmission Date: 20150721
  Serious: No
  Sender: FDA-Public Use
  Company Number: US-VERTEX PHARMACEUTICALS INC-2014-000945

PATIENT
  Sex: Female

DRUGS (10)
  1. RUTOSIDE [Concomitant]
     Dosage: 150 MG, UNK
  2. CHYMOTRYPSIN [Concomitant]
     Active Substance: CHYMOTRYPSIN
     Dosage: 3 MG, UNK
  3. PANCREATIN [Concomitant]
     Active Substance: PANCRELIPASE
     Dosage: 300 MG, UNK
  4. PAPAIN [Concomitant]
     Active Substance: PAPAIN
     Dosage: 180 MG, UNK
  5. IVACAFTOR [Suspect]
     Active Substance: IVACAFTOR
     Dosage: 150 MG, QD
     Route: 048
     Dates: start: 20131115
  6. IVACAFTOR [Suspect]
     Active Substance: IVACAFTOR
     Indication: CYSTIC FIBROSIS
     Dosage: UNK
     Route: 048
     Dates: start: 20130204
  7. CIPRO [Suspect]
     Active Substance: CIPROFLOXACIN HYDROCHLORIDE
     Indication: TENDONITIS
     Route: 065
  8. BROMELAIN [Concomitant]
     Active Substance: BROMELAINS
     Dosage: 135 MG, UNK
  9. TRYPSIN [Concomitant]
     Active Substance: TRYPSIN
     Dosage: 72 MG, UNK
  10. CALCIUM PHOSPHATE [Concomitant]
     Active Substance: CALCIUM PHOSPHATE

REACTIONS (5)
  - Therapy change [Unknown]
  - Tendonitis [Unknown]
  - Cough [Unknown]
  - Pulmonary function test decreased [Not Recovered/Not Resolved]
  - Nasopharyngitis [Unknown]
